FAERS Safety Report 26043973 (Version 1)
Quarter: 2025Q4

REPORT INFORMATION
  Report Type: Report from Study
  Country: BR (occurrence: BR)
  Receive Date: 20251114
  Receipt Date: 20251114
  Transmission Date: 20260118
  Serious: Yes (Other)
  Sender: ABBVIE
  Company Number: BR-ABBVIE-6544529

PATIENT
  Sex: Male
  Weight: 60 kg

DRUGS (4)
  1. HUMIRA [Suspect]
     Active Substance: ADALIMUMAB
     Indication: Rheumatoid arthritis
     Route: 058
  2. HUMIRA [Suspect]
     Active Substance: ADALIMUMAB
     Indication: Psoriatic arthropathy
  3. HUMIRA [Suspect]
     Active Substance: ADALIMUMAB
     Indication: Juvenile idiopathic arthritis
  4. METHOTREXATE [Concomitant]
     Active Substance: METHOTREXATE
     Indication: Rheumatoid arthritis
     Dosage: 8 TABLETS PER WEEK
     Route: 048

REACTIONS (17)
  - Blood viscosity increased [Unknown]
  - Pyrexia [Unknown]
  - Poor quality sleep [Unknown]
  - Pruritus [Not Recovered/Not Resolved]
  - Swelling [Not Recovered/Not Resolved]
  - Rheumatoid arthritis [Not Recovered/Not Resolved]
  - Psoriatic arthropathy [Not Recovered/Not Resolved]
  - Mobility decreased [Unknown]
  - Pain in extremity [Unknown]
  - Musculoskeletal disorder [Unknown]
  - Pain [Unknown]
  - Dysstasia [Unknown]
  - Back pain [Unknown]
  - Musculoskeletal disorder [Unknown]
  - Joint lock [Unknown]
  - Abdominal pain upper [Recovering/Resolving]
  - Pulmonary pain [Recovering/Resolving]

NARRATIVE: CASE EVENT DATE: 20250701
